FAERS Safety Report 4766061-5 (Version None)
Quarter: 2005Q3

REPORT INFORMATION
  Report Type: 
  Country: None (occurrence: None)
  Receive Date: 20050912
  Receipt Date: 20050727
  Transmission Date: 20060218
  Serious: Yes (Hospitalization)
  Sender: FDA-Public Use
  Company Number: PHNU2005DE02693

PATIENT
  Age: 52 Year
  Sex: Female

DRUGS (3)
  1. PROVAS COMP [Suspect]
     Indication: HYPERTENSION
     Dosage: 1 DF, QD
     Route: 048
     Dates: start: 20040603, end: 20050419
  2. OPIPRAMOL HYDROCHLORIDE [Concomitant]
     Indication: EXCITABILITY
     Route: 048
     Dates: start: 20041025, end: 20050101
  3. DOXEPIN HCL [Concomitant]
     Indication: ANXIETY DISORDER
     Route: 048
     Dates: start: 20050101

REACTIONS (3)
  - ANXIETY [None]
  - CONDITION AGGRAVATED [None]
  - DEPRESSION [None]
